FAERS Safety Report 4515794-4 (Version None)
Quarter: 2004Q4

REPORT INFORMATION
  Report Type: 
  Country: None (occurrence: None)
  Receive Date: 20041001
  Receipt Date: 20040720
  Transmission Date: 20050328
  Serious: Yes (Other)
  Sender: FDA-Public Use
  Company Number: 002116

PATIENT
  Age: 58 Year
  Sex: Female

DRUGS (4)
  1. MEDROXYPROGESTERONE ACETATE [Suspect]
     Dates: start: 19930601, end: 19960313
  2. PREMARIN [Suspect]
     Dates: start: 19930520, end: 19960313
  3. PROVERA [Suspect]
     Dates: start: 19930601, end: 19960313
  4. MEDROXYPROGESTERONE ACETATE [Suspect]
     Dates: start: 19960313, end: 19970611

REACTIONS (1)
  - CEREBROVASCULAR ACCIDENT [None]
